FAERS Safety Report 9132443 (Version 2)
Quarter: 2014Q2

REPORT INFORMATION
  Report Type: Spontaneous
  Country: US (occurrence: US)
  Receive Date: 20130301
  Receipt Date: 20140527
  Transmission Date: 20141212
  Serious: Yes (Hospitalization)
  Sender: FDA-Public Use
  Company Number: US-GLAXOSMITHKLINE-A1013447A

PATIENT
  Age: 65 Year
  Sex: Male

DRUGS (22)
  1. AVODART [Suspect]
     Indication: PROSTATOMEGALY
     Dosage: .5MG PER DAY
     Route: 048
     Dates: start: 201003
  2. XANAX [Concomitant]
  3. METFORMIN [Concomitant]
  4. GEMFIBROZIL [Concomitant]
  5. METOPROLOL [Concomitant]
  6. MULTAQ [Concomitant]
  7. ALLOPURINOL [Concomitant]
  8. POTASSIUM [Concomitant]
  9. FUROSEMIDE [Concomitant]
  10. FLOMAX [Concomitant]
  11. PLAVIX [Concomitant]
  12. DIGOXIN [Concomitant]
  13. LEVOTHYROXINE [Concomitant]
  14. FOLIC ACID [Concomitant]
  15. COUMADIN [Concomitant]
  16. SPIRONOLACTONE [Concomitant]
  17. ASPIRIN [Concomitant]
  18. SIMVASTATIN [Concomitant]
  19. SINGULAIR [Concomitant]
  20. SAW PALMETTO [Concomitant]
  21. CRANBERRY TABLETS WITH VITAMIN C [Concomitant]
  22. VITAMIN C [Concomitant]

REACTIONS (4)
  - Urinary retention [Not Recovered/Not Resolved]
  - Haemorrhage urinary tract [Not Recovered/Not Resolved]
  - Drug ineffective [Not Recovered/Not Resolved]
  - Investigation [Unknown]
